FAERS Safety Report 8776710 (Version 1)
Quarter: 2012Q4

REPORT INFORMATION
  Report Type: 
  Country: AU (occurrence: AU)
  Receive Date: 20120910
  Receipt Date: 20120910
  Transmission Date: 20130627
  Serious: Yes (Other)
  Sender: FDA-Public Use
  Company Number: PHHY2012AU057711

PATIENT
  Sex: Female
  Weight: 68 kg

DRUGS (4)
  1. FEMARA [Suspect]
     Indication: BREAST CANCER
     Dosage: 2.5 mg, Daily
     Dates: start: 200311, end: 200812
  2. FEMARA [Suspect]
     Dosage: 2.5 mg, Daily
     Dates: start: 201001
  3. NEXIUM [Concomitant]
     Indication: GASTROOESOPHAGEAL REFLUX DISEASE
     Dosage: 20 mg, UNK
     Route: 048
     Dates: start: 20040615, end: 20101129
  4. FLUOXETINE [Concomitant]
     Indication: DEPRESSION
     Dosage: 20 mg, UNK
     Route: 048
     Dates: start: 20040615, end: 20111027

REACTIONS (4)
  - Hypoaesthesia [Not Recovered/Not Resolved]
  - Burning sensation [Not Recovered/Not Resolved]
  - Depression [Recovered/Resolved]
  - Pollakiuria [Unknown]
